FAERS Safety Report 15669566 (Version 3)
Quarter: 2018Q4

REPORT INFORMATION
  Report Type: Spontaneous
  Country: JP (occurrence: JP)
  Receive Date: 20181129
  Receipt Date: 20181218
  Transmission Date: 20190205
  Serious: Yes (Other)
  Sender: FDA-Public Use
  Company Number: JP-NAPPMUNDI-GBR-2018-0061074

PATIENT
  Age: 43 Year
  Sex: Male

DRUGS (12)
  1. OXIFAST [Suspect]
     Active Substance: OXYCODONE
     Indication: CANCER PAIN
     Dosage: 196 MG, DAILY
     Route: 058
  2. OXYCODONE HYDROCHLORIDE. [Concomitant]
     Active Substance: OXYCODONE HYDROCHLORIDE
     Dosage: UNK
  3. CAPECITABINE. [Concomitant]
     Active Substance: CAPECITABINE
  4. OXYCODONE HYDROCHLORIDE. [Concomitant]
     Active Substance: OXYCODONE HYDROCHLORIDE
     Dosage: UNK
  5. OXIFAST [Suspect]
     Active Substance: OXYCODONE
     Dosage: 24 MG, DAILY
     Route: 058
  6. CELECOXIB. [Concomitant]
     Active Substance: CELECOXIB
  7. CISPLATIN. [Concomitant]
     Active Substance: CISPLATIN
  8. RAMUCIRUMAB [Concomitant]
     Active Substance: RAMUCIRUMAB
  9. PACLITAXEL. [Concomitant]
     Active Substance: PACLITAXEL
  10. OXIFAST [Suspect]
     Active Substance: OXYCODONE
     Dosage: 48 MG, DAILY
     Route: 058
  11. ACETAMINOPHEN. [Concomitant]
     Active Substance: ACETAMINOPHEN
  12. TRASTUZUMAB. [Concomitant]
     Active Substance: TRASTUZUMAB

REACTIONS (2)
  - Generalised erythema [Recovered/Resolved]
  - Cellulitis [Recovered/Resolved]
